FAERS Safety Report 8494669-2 (Version None)
Quarter: 2012Q3

REPORT INFORMATION
  Report Type: 
  Country: None (occurrence: None)
  Receive Date: 20120709
  Receipt Date: 20120702
  Transmission Date: 20120928
  Serious: Yes (Hospitalization)
  Sender: FDA-Public Use
  Company Number: PHHY2012GB056716

PATIENT
  Age: 76 Year
  Sex: Female

DRUGS (23)
  1. OMEPRAZOLE [Concomitant]
     Dosage: 40 MG, QD
     Route: 048
  2. NITROGLYCERIN [Concomitant]
     Route: 060
  3. HYDROXYCHLOROQUINE SULFATE [Concomitant]
     Dosage: 200 MG, QD
     Route: 048
  4. NICORANDIL [Concomitant]
     Dosage: 10 MG, BID
     Route: 048
  5. ACETAMINOPHEN [Concomitant]
     Dosage: 1 G, UNK
     Route: 048
  6. ATORVASTATIN [Suspect]
     Dosage: 80 MG, QD
     Route: 048
  7. BUMETANIDE [Concomitant]
     Dosage: 1 MG, QD
     Route: 048
  8. CALCICHEW D3 [Concomitant]
     Dosage: 1 DF, QD
     Route: 048
  9. DULOXETIME HYDROCHLORIDE [Concomitant]
     Dosage: 60 MG, QD
     Route: 048
  10. PHENOXYMETHYLPENICILLIN [Concomitant]
     Dosage: 250 MG, BID
     Route: 048
  11. QUININE SULFATE [Concomitant]
     Dosage: 300 MG, QD
     Route: 048
  12. FLUTICASONE PROPIONATE/SALMETEROL [Concomitant]
     Dosage: 2 DF, BID
  13. ALENDRONATE SODIUM [Concomitant]
     Dosage: 1 DF, QW
     Route: 048
  14. ISOSORBIDE MONONITRATE [Concomitant]
     Dosage: 90 MG, BID
     Route: 048
  15. MEDROXYPROGESTERONE [Concomitant]
     Dosage: 50 MG, QD
     Route: 048
  16. BISOPROLOL FUMARATE [Concomitant]
     Dosage: 2. MG, QD
     Route: 048
  17. ENOXAPARIN [Concomitant]
     Dosage: 40 MG, QD
     Route: 048
  18. CLOPIDOGREL [Concomitant]
     Dosage: 75 MG, QD
     Route: 048
  19. HYDROXYZINE [Concomitant]
     Dosage: 10 MG, QD
     Route: 048
  20. MACROGOL 3350 [Concomitant]
     Dosage: 1 DF, QD
     Route: 048
  21. OXYCODONE HCL [Concomitant]
     Route: 048
  22. TERBUTALINE [Concomitant]
     Dosage: 1 DF, UNK
  23. ASPIRIN [Concomitant]
     Dosage: 75 MG, QD

REACTIONS (5)
  - C-REACTIVE PROTEIN INCREASED [None]
  - PANCREATITIS ACUTE [None]
  - AMYLASE INCREASED [None]
  - WHITE BLOOD CELL COUNT INCREASED [None]
  - BLOOD POTASSIUM DECREASED [None]
